FAERS Safety Report 7483554-0 (Version None)
Quarter: 2011Q2

REPORT INFORMATION
  Report Type: 
  Country: None (occurrence: None)
  Receive Date: 20110517
  Receipt Date: 20110512
  Transmission Date: 20111010
  Serious: No
  Sender: FDA-Public Use
  Company Number: US-PFIZER INC-2011103565

PATIENT
  Sex: Male

DRUGS (1)
  1. NITROSTAT [Suspect]
     Dosage: UNK

REACTIONS (4)
  - HEADACHE [None]
  - DISCOMFORT [None]
  - DRUG INEFFECTIVE [None]
  - PARAESTHESIA ORAL [None]
